FAERS Safety Report 7367048 (Version 4)
Quarter: 2014Q1

REPORT INFORMATION
  Report Type: Spontaneous
  Country: US (occurrence: US)
  Receive Date: 20100427
  Receipt Date: 20140129
  Transmission Date: 20141002
  Serious: Yes (Other)
  Sender: FDA-Public Use
  Company Number: US-JNJFOC-20100404830

PATIENT
  Age: 59 Year
  Sex: Female
  Weight: 58.97 kg

DRUGS (27)
  1. SANDOZ FENTANYL TRANSDERMAL SYSTEM [Suspect]
     Indication: PAIN IN EXTREMITY
     Route: 062
     Dates: end: 201003
  2. SANDOZ FENTANYL TRANSDERMAL SYSTEM [Suspect]
     Indication: PAIN
     Route: 062
     Dates: end: 201003
  3. SANDOZ FENTANYL TRANSDERMAL SYSTEM [Suspect]
     Indication: PAIN IN EXTREMITY
     Route: 062
     Dates: start: 201003
  4. SANDOZ FENTANYL TRANSDERMAL SYSTEM [Suspect]
     Indication: PAIN
     Route: 062
     Dates: start: 201003
  5. DURAGESIC [Suspect]
     Indication: PRODUCT USED FOR UNKNOWN INDICATION
     Route: 062
  6. LEVOTHYROXINE [Concomitant]
     Route: 065
  7. ZANAFLEX [Concomitant]
     Indication: MUSCLE DISORDER
     Route: 048
  8. ATENOLOL [Concomitant]
     Indication: HYPERTENSION
     Route: 048
  9. ATENOLOL [Concomitant]
     Indication: HYPERTENSION
     Route: 048
     Dates: start: 2009
  10. TRICOR [Concomitant]
     Indication: BLOOD CHOLESTEROL INCREASED
     Route: 048
     Dates: start: 2009
  11. LYRICA [Concomitant]
     Indication: PAIN
     Route: 048
  12. MIRTAZAPINE [Concomitant]
     Indication: SLEEP DISORDER
     Route: 048
  13. PHENERGAN [Concomitant]
     Route: 065
  14. AMBIEN [Concomitant]
     Route: 065
  15. ZANAFLEX [Concomitant]
     Route: 065
  16. VALIUM [Concomitant]
     Dosage: 2 TO 5 A DAY
     Route: 065
  17. LORTAB [Concomitant]
     Route: 065
  18. LIDOCAINE PATCH [Concomitant]
     Route: 065
  19. LOTRIMIN [Concomitant]
     Indication: DIARRHOEA
     Route: 065
  20. TRAMADOL [Concomitant]
     Route: 065
  21. DOXEPIN [Concomitant]
     Route: 065
  22. COLESTIPOL HCL [Concomitant]
     Route: 065
  23. PREVACID [Concomitant]
     Route: 065
  24. PROMETHAZINE [Concomitant]
     Route: 065
  25. PREDNISONE [Concomitant]
     Route: 065
  26. ZOLPIDEM [Concomitant]
     Route: 065
  27. DIAZEPAM [Concomitant]
     Route: 065

REACTIONS (10)
  - Rheumatoid arthritis [Not Recovered/Not Resolved]
  - Gastric disorder [Not Recovered/Not Resolved]
  - Diarrhoea [Recovered/Resolved]
  - Alopecia [Unknown]
  - Anxiety [Not Recovered/Not Resolved]
  - Inadequate analgesia [Not Recovered/Not Resolved]
  - Nervousness [Unknown]
  - Blood cholesterol increased [Unknown]
  - Blood triglycerides increased [Unknown]
  - Dysphagia [Unknown]
